FAERS Safety Report 16328548 (Version 1)
Quarter: 2019Q2

REPORT INFORMATION
  Report Type: Spontaneous
  Country: IT (occurrence: IT)
  Receive Date: 20190518
  Receipt Date: 20190518
  Transmission Date: 20190711
  Serious: Yes (Other)
  Sender: FDA-Public Use
  Company Number: PHHY2019IT113975

PATIENT
  Age: 9 Year
  Sex: Female

DRUGS (4)
  1. METHOTREXATE. [Suspect]
     Active Substance: METHOTREXATE
     Indication: JUVENILE IDIOPATHIC ARTHRITIS
     Dosage: 15 MG/M2, QW
     Route: 065
  2. ABATACEPT [Suspect]
     Active Substance: ABATACEPT
     Indication: JUVENILE IDIOPATHIC ARTHRITIS
     Dosage: 24 MG/M2, EVERY 4 WEEKS
     Route: 065
  3. METHOTREXATE. [Suspect]
     Active Substance: METHOTREXATE
     Indication: UVEITIS
  4. ABATACEPT [Suspect]
     Active Substance: ABATACEPT
     Indication: UVEITIS

REACTIONS (6)
  - Uveitis [Unknown]
  - Product use in unapproved indication [Unknown]
  - Cataract [Unknown]
  - Therapeutic response decreased [Unknown]
  - Cystoid macular oedema [Unknown]
  - Juvenile idiopathic arthritis [Unknown]
